FAERS Safety Report 5015819-6 (Version None)
Quarter: 2006Q2

REPORT INFORMATION
  Report Type: 
  Country: None (occurrence: None)
  Receive Date: 20060525
  Receipt Date: 20060510
  Transmission Date: 20061013
  Serious: Yes (Hospitalization)
  Sender: FDA-Public Use
  Company Number: PAR_0628_2006

PATIENT
  Age: 41 Year
  Sex: Male

DRUGS (1)
  1. IBUPROFEN [Suspect]
     Indication: SHOULDER PAIN
     Dosage: 400 MG TID; PO
     Route: 048

REACTIONS (9)
  - DRUG TOXICITY [None]
  - EYE PAIN [None]
  - OPTIC NEURITIS RETROBULBAR [None]
  - PAPILLOEDEMA [None]
  - VISION BLURRED [None]
  - VISUAL ACUITY REDUCED [None]
  - VISUAL DISTURBANCE [None]
  - VISUAL EVOKED POTENTIALS ABNORMAL [None]
  - VISUAL FIELD DEFECT [None]
